FAERS Safety Report 8594064-1 (Version None)
Quarter: 2012Q3

REPORT INFORMATION
  Report Type: 
  Country: None (occurrence: None)
  Receive Date: 20120814
  Receipt Date: 20120808
  Transmission Date: 20120928
  Serious: Yes (Hospitalization, Other)
  Sender: FDA-Public Use
  Company Number: PHHY2012US068509

PATIENT
  Age: 65 Year
  Sex: Male

DRUGS (2)
  1. LEVOFLOXACIN [Suspect]
  2. VANCOMYCIN [Suspect]

REACTIONS (20)
  - RESPIRATORY DISTRESS [None]
  - LEUKOCYTOSIS [None]
  - RASH MORBILLIFORM [None]
  - RASH GENERALISED [None]
  - MENTAL STATUS CHANGES [None]
  - LYMPHOCYTOSIS [None]
  - TACHYPNOEA [None]
  - METABOLIC ACIDOSIS [None]
  - TACHYCARDIA [None]
  - EOSINOPHILIA [None]
  - DRUG RASH WITH EOSINOPHILIA AND SYSTEMIC SYMPTOMS [None]
  - PRURITUS [None]
  - OEDEMA MUCOSAL [None]
  - ERYTHEMA [None]
  - ARRHYTHMIA SUPRAVENTRICULAR [None]
  - TONGUE OEDEMA [None]
  - PYREXIA [None]
  - TRACHEAL OEDEMA [None]
  - MACULE [None]
  - PURPURA [None]
